FAERS Safety Report 7319200-6 (Version None)
Quarter: 2011Q1

REPORT INFORMATION
  Report Type: 
  Country: None (occurrence: None)
  Receive Date: 20110228
  Receipt Date: 20110215
  Transmission Date: 20110831
  Serious: Yes (Death, Other)
  Sender: FDA-Public Use
  Company Number: NO-WATSON-2011-02080

PATIENT
  Age: 58 Year
  Sex: Female

DRUGS (2)
  1. CITALOPRAM HYDROBROMIDE [Suspect]
     Indication: PRODUCT USED FOR UNKNOWN INDICATION
     Dosage: UNK
     Route: 065
  2. AMITRIPTYLINE HCL [Suspect]
     Indication: PRODUCT USED FOR UNKNOWN INDICATION
     Dosage: UNK
     Route: 065

REACTIONS (12)
  - MECHANICAL VENTILATION [None]
  - NYSTAGMUS [None]
  - SEROTONIN SYNDROME [None]
  - MULTI-ORGAN FAILURE [None]
  - COMA [None]
  - MUSCLE TWITCHING [None]
  - DISSEMINATED INTRAVASCULAR COAGULATION [None]
  - APRAXIA [None]
  - ATAXIA [None]
  - CONFUSIONAL STATE [None]
  - DIZZINESS [None]
  - RHABDOMYOLYSIS [None]
